FAERS Safety Report 7591144-4 (Version None)
Quarter: 2011Q3

REPORT INFORMATION
  Report Type: 
  Country: None (occurrence: None)
  Receive Date: 20110705
  Receipt Date: 20110624
  Transmission Date: 20111222
  Serious: Yes (Hospitalization, Other)
  Sender: FDA-Public Use
  Company Number: US-ASTRAZENECA-2011SE38486

PATIENT
  Age: 62 Year
  Sex: Female

DRUGS (1)
  1. NEXIUM [Suspect]
     Route: 048

REACTIONS (10)
  - NEOPLASM [None]
  - LARYNGEAL INFLAMMATION [None]
  - HERNIA [None]
  - INSOMNIA [None]
  - GASTROOESOPHAGEAL REFLUX DISEASE [None]
  - OROPHARYNGEAL PAIN [None]
  - COUGH [None]
  - DYSPEPSIA [None]
  - THROAT IRRITATION [None]
  - HEADACHE [None]
